FAERS Safety Report 21208210 (Version 1)
Quarter: 2022Q3

REPORT INFORMATION
  Report Type: Spontaneous
  Country: US (occurrence: US)
  Receive Date: 20220812
  Receipt Date: 20220812
  Transmission Date: 20221027
  Serious: No
  Sender: FDA-Public Use
  Company Number: US-BAYER-2022A113063

PATIENT
  Age: 76 Year
  Sex: Male

DRUGS (4)
  1. MIRALAX [Suspect]
     Active Substance: POLYETHYLENE GLYCOL 3350
     Indication: Gastrointestinal disorder
     Dosage: 1 PACKET EARLY IN THE MORNING.
     Route: 048
     Dates: start: 202207
  2. GABAPENTIN [Concomitant]
     Active Substance: GABAPENTIN
  3. WARFARIN [Concomitant]
     Active Substance: WARFARIN
  4. ANTI DIABETIC [Concomitant]

REACTIONS (1)
  - Burning sensation [Recovered/Resolved]

NARRATIVE: CASE EVENT DATE: 20220701
